FAERS Safety Report 5586930-6 (Version None)
Quarter: 2008Q1

REPORT INFORMATION
  Report Type: 
  Country: None (occurrence: None)
  Receive Date: 20080110
  Receipt Date: 20080103
  Transmission Date: 20080703
  Serious: Yes (Hospitalization, Other)
  Sender: FDA-Public Use
  Company Number: TW-WYE-H01574707

PATIENT
  Sex: Male
  Weight: 67.5 kg

DRUGS (7)
  1. SIROLIMUS [Suspect]
     Indication: PROPHYLAXIS AGAINST TRANSPLANT REJECTION
     Dosage: 2 MG, 3 MG EVERY OTHER DAY
     Route: 048
     Dates: start: 20051109
  2. LAMIVUDINE [Concomitant]
     Dosage: UNKNOWN
     Dates: start: 20050207
  3. URSODIOL [Concomitant]
     Dosage: UNSPECIFIED
     Dates: start: 20061219
  4. VITAMIN B-COMPLEX WITH VITAMIN C [Concomitant]
     Dosage: UNSPECIFIED
     Dates: start: 20051108
  5. LIVER HYDROLYSATE [Concomitant]
     Dosage: UNSPECIFIED
     Dates: start: 20050207
  6. MYCOPHENOLATE MOFETIL [Concomitant]
     Indication: PROPHYLAXIS AGAINST TRANSPLANT REJECTION
     Dates: start: 20010206
  7. SIMVASTATIN [Concomitant]
     Indication: HYPERLIPIDAEMIA
     Dates: start: 20060314

REACTIONS (1)
  - METASTASES TO LUNG [None]
